FAERS Safety Report 26000518 (Version 1)
Quarter: 2025Q4

REPORT INFORMATION
  Report Type: Spontaneous
  Country: CN (occurrence: CN)
  Receive Date: 20251105
  Receipt Date: 20251105
  Transmission Date: 20260117
  Serious: Yes (Life-Threatening, Hospitalization, Other)
  Sender: DIFGEN PHARMACEUTICALS LLC
  Company Number: CN-Difgen-012224

PATIENT
  Age: 24 Year
  Sex: Male

DRUGS (1)
  1. NICOTINE [Suspect]
     Active Substance: NICOTINE
     Indication: Product used for unknown indication
     Dosage: EXPOSED TO PATIENT^S SKIN, ORAL CAVITY AND NASAL PASSAGES
     Route: 061

REACTIONS (7)
  - Cardiac arrest [Recovered/Resolved]
  - Coma [Recovered/Resolved]
  - Hypoxic-ischaemic encephalopathy [Recovered/Resolved]
  - Respiratory distress [Recovered/Resolved]
  - Tobacco poisoning [Recovered/Resolved]
  - Near death experience [Recovered/Resolved]
  - Occupational exposure to product [Recovered/Resolved]
